FAERS Safety Report 23287602 (Version 2)
Quarter: 2024Q1

REPORT INFORMATION
  Report Type: Spontaneous
  Country: AR (occurrence: AR)
  Receive Date: 20231212
  Receipt Date: 20240131
  Transmission Date: 20240409
  Serious: No
  Sender: FDA-Public Use
  Company Number: AR-PFIZER INC-PV202300190948

PATIENT
  Age: 8 Year
  Sex: Male

DRUGS (1)
  1. GENOTROPIN [Suspect]
     Active Substance: SOMATROPIN
     Indication: Growth hormone deficiency
     Dosage: 0.1 TO 0.5MG, 7X/WEEK
     Dates: start: 20230410

REACTIONS (2)
  - Incorrect dose administered by device [Not Recovered/Not Resolved]
  - Device leakage [Not Recovered/Not Resolved]
